FAERS Safety Report 8366901-7 (Version None)
Quarter: 2012Q2

REPORT INFORMATION
  Report Type: 
  Country: None (occurrence: None)
  Receive Date: 20120517
  Receipt Date: 20120507
  Transmission Date: 20120825
  Serious: Yes (Death, Hospitalization)
  Sender: FDA-Public Use
  Company Number: US-ROCHE-1054318

PATIENT
  Sex: Female
  Weight: 44.946 kg

DRUGS (1)
  1. XELODA [Suspect]
     Indication: COLON CANCER
     Route: 048
     Dates: start: 20110113, end: 20120104

REACTIONS (5)
  - CARDIO-RESPIRATORY ARREST [None]
  - SEPSIS [None]
  - METABOLIC ACIDOSIS [None]
  - COLON CANCER METASTATIC [None]
  - HYPOTENSION [None]
